FAERS Safety Report 16867904 (Version 1)
Quarter: 2019Q3

REPORT INFORMATION
  Report Type: Report from Study
  Country: IL (occurrence: IL)
  Receive Date: 20190930
  Receipt Date: 20190930
  Transmission Date: 20191005
  Serious: Yes (Hospitalization)
  Sender: FDA-Public Use
  Company Number: PHHO2016IL009275

PATIENT
  Age: 84 Year
  Sex: Female
  Weight: 70 kg

DRUGS (21)
  1. VALSARTAN. [Suspect]
     Active Substance: VALSARTAN
     Dosage: 160 MG, BID
     Route: 048
     Dates: start: 20160626, end: 20160713
  2. VALSARTAN / DIOVAN / VAL489 / CGP 48933 [Suspect]
     Active Substance: VALSARTAN
     Indication: CARDIAC FAILURE
     Dosage: 80 MG, BID
     Route: 042
     Dates: start: 20160714
  3. MONOLONG [Concomitant]
     Active Substance: ISOSORBIDE MONONITRATE
     Indication: MYOCARDIAL ISCHAEMIA
     Dosage: 60 MG, QD
     Route: 048
     Dates: start: 20160714
  4. FUSID [FUROSEMIDE] [Suspect]
     Active Substance: FUROSEMIDE
     Dosage: 60 MG, BID
     Route: 042
     Dates: start: 20160629
  5. CARDILOC [Suspect]
     Active Substance: BISOPROLOL FUMARATE
     Dosage: 2.5 MG, QD
     Route: 065
     Dates: start: 20160831, end: 20160905
  6. ASPIRIN. [Concomitant]
     Active Substance: ASPIRIN
     Dosage: 300 MG
     Route: 048
     Dates: start: 20160627, end: 20160627
  7. FUSID [FUROSEMIDE] [Suspect]
     Active Substance: FUROSEMIDE
     Indication: CARDIAC FAILURE CHRONIC
     Dosage: 80 MG, QD (4X/WEEK)
     Route: 048
     Dates: start: 20080108, end: 20160123
  8. ELIQUIS [Concomitant]
     Active Substance: APIXABAN
     Indication: THROMBOSIS PROPHYLAXIS
     Dosage: 2.5 MG, BID
     Route: 065
     Dates: start: 20160416, end: 20160623
  9. VASODIP [Concomitant]
     Active Substance: LERCANIDIPINE HYDROCHLORIDE
     Indication: CARDIAC FAILURE
     Dosage: 10 MG, QD
     Route: 048
     Dates: start: 20160627
  10. PLACEBO [Suspect]
     Active Substance: UNSPECIFIED INGREDIENT
     Indication: CARDIAC FAILURE
     Dosage: UNK
     Route: 048
     Dates: start: 20160126, end: 20160623
  11. PLACEBO [Suspect]
     Active Substance: UNSPECIFIED INGREDIENT
     Dosage: UNK
     Route: 048
     Dates: start: 20160626, end: 20160713
  12. CARDILOC [Suspect]
     Active Substance: BISOPROLOL FUMARATE
     Indication: CARDIAC FAILURE CHRONIC
     Dosage: 2.5 MG, BID
     Route: 065
     Dates: start: 20140504
  13. VALSARTAN. [Suspect]
     Active Substance: VALSARTAN
     Indication: CARDIAC FAILURE
     Dosage: 160 MG, BID
     Route: 048
     Dates: start: 20160126, end: 20160623
  14. VALSARTAN / DIOVAN / VAL489 / CGP 48933 [Suspect]
     Active Substance: VALSARTAN
     Dosage: 80 MG, QD
     Route: 042
     Dates: end: 20160905
  15. FUSID [FUROSEMIDE] [Suspect]
     Active Substance: FUROSEMIDE
     Dosage: 100 MG, 3X/WEEK
     Route: 042
     Dates: start: 2010, end: 201606
  16. FUSID [FUROSEMIDE] [Suspect]
     Active Substance: FUROSEMIDE
     Dosage: 40 MG, QD
     Route: 048
     Dates: start: 20160624, end: 20160627
  17. FUSID [FUROSEMIDE] [Suspect]
     Active Substance: FUROSEMIDE
     Dosage: 40 MG, UNK
     Route: 042
     Dates: start: 20160627
  18. FUSID [FUROSEMIDE] [Suspect]
     Active Substance: FUROSEMIDE
     Dosage: 40 MG, BID
     Route: 042
     Dates: start: 20160806, end: 20160808
  19. FUSID [FUROSEMIDE] [Suspect]
     Active Substance: FUROSEMIDE
     Dosage: 60 MG, BID
     Route: 042
     Dates: start: 20160808
  20. FUSID [FUROSEMIDE] [Suspect]
     Active Substance: FUROSEMIDE
     Dosage: 40 MG, BID
     Route: 065
     Dates: start: 20160831, end: 20160905
  21. ASPIRIN. [Concomitant]
     Active Substance: ASPIRIN
     Indication: PRODUCT USED FOR UNKNOWN INDICATION
     Dosage: 100 MG, QD
     Route: 065
     Dates: start: 20030823, end: 20160623

REACTIONS (2)
  - Orthostatic hypotension [Recovered/Resolved]
  - Cardiac failure [Recovered/Resolved]

NARRATIVE: CASE EVENT DATE: 20160623
